FAERS Safety Report 7808530-7 (Version None)
Quarter: 2011Q4

REPORT INFORMATION
  Report Type: 
  Country: None (occurrence: None)
  Receive Date: 20111012
  Receipt Date: 20110930
  Transmission Date: 20120403
  Serious: Yes (Death, Hospitalization, Other)
  Sender: FDA-Public Use
  Company Number: BR-RANBAXY-2011RR-48004

PATIENT
  Sex: Male

DRUGS (7)
  1. OXACILLIN [Suspect]
     Indication: PRODUCT USED FOR UNKNOWN INDICATION
     Dosage: UNK
     Route: 065
  2. GENTAMICIN [Suspect]
     Indication: ABSCESS
     Dosage: UNK
  3. PENICILLIN [Suspect]
     Indication: PRODUCT USED FOR UNKNOWN INDICATION
     Route: 063
  4. CIPROFLOXACIN [Suspect]
     Indication: PRODUCT USED FOR UNKNOWN INDICATION
     Route: 065
  5. PENICILLIN [Suspect]
     Indication: ABSCESS
     Dosage: UNK
     Route: 065
  6. VANCOMYCIN [Suspect]
     Indication: ABSCESS
     Route: 065
  7. METRONIDAZOLE [Suspect]
     Indication: PRODUCT USED FOR UNKNOWN INDICATION
     Route: 065

REACTIONS (4)
  - CONDITION AGGRAVATED [None]
  - EXPOSURE DURING BREAST FEEDING [None]
  - NECROTISING ENTEROCOLITIS NEONATAL [None]
  - TOXIC EPIDERMAL NECROLYSIS [None]
